FAERS Safety Report 13658521 (Version 3)
Quarter: 2017Q3

REPORT INFORMATION
  Report Type: Spontaneous
  Country: US (occurrence: US)
  Receive Date: 20170616
  Receipt Date: 20170803
  Transmission Date: 20171127
  Serious: No
  Sender: FDA-Public Use
  Company Number: US-PFIZER INC-2017258497

PATIENT
  Age: 65 Year
  Sex: Female
  Weight: 61.23 kg

DRUGS (5)
  1. IBRANCE [Suspect]
     Active Substance: PALBOCICLIB
     Indication: NEOPLASM MALIGNANT
     Dosage: 125 MG, 1X/DAY
     Dates: start: 201510
  2. OSCAL PLUS D [Concomitant]
     Indication: BONE DISORDER
     Dosage: 600 MG, 1X/DAY
  3. OSCAL [Concomitant]
     Active Substance: CALCIUM CARBONATE
     Dosage: UNK
  4. XARELTO [Concomitant]
     Active Substance: RIVAROXABAN
     Indication: ANTICOAGULANT THERAPY
     Dosage: 20 MG, 1X/DAY
     Dates: start: 2014
  5. LETROZOLE. [Concomitant]
     Active Substance: LETROZOLE
     Indication: ANTIOESTROGEN THERAPY
     Dosage: 2.5 MG, 1X/DAY

REACTIONS (6)
  - Visual impairment [Unknown]
  - Oral mucosal blistering [Recovered/Resolved]
  - Increased appetite [Not Recovered/Not Resolved]
  - Diarrhoea [Recovered/Resolved]
  - Tongue blistering [Not Recovered/Not Resolved]
  - Lip blister [Recovered/Resolved]

NARRATIVE: CASE EVENT DATE: 201601
